FAERS Safety Report 19994006 (Version 2)
Quarter: 2022Q2

REPORT INFORMATION
  Report Type: Report from Study
  Country: NL (occurrence: NL)
  Receive Date: 20211025
  Receipt Date: 20220427
  Transmission Date: 20220721
  Serious: Yes (Other)
  Sender: FDA-Public Use
  Company Number: NL-PFIZER INC-202101411267

PATIENT

DRUGS (3)
  1. PACLITAXEL [Suspect]
     Active Substance: PACLITAXEL
     Indication: Neoplasm malignant
     Dosage: 90 MG/M2, CYCLIC (WEEKLY, POSSIBILITY TO REDUCE DOSE TO 75 MG/M2 AND 60 MG/M2 IN CASE OF TOXICITY)
     Route: 042
  2. BAY-1217389 [Suspect]
     Active Substance: BAY-1217389
     Indication: Neoplasm malignant
     Dosage: 0.25 MG, TWICE DAILY, 2-DAYS-ON/5-DAYS-OFF DOSING SCHEDULE IN A 28-DAY CYCLE
     Route: 048
  3. BAY-1217389 [Suspect]
     Active Substance: BAY-1217389
     Dosage: DOSE ESCALATION UP TO 80 MG TWICE DAILY, 2-DAYS-ON/5-DAYS-OFF DOSING SCHEDULE IN A 28-DAY CYCLE
     Route: 048

REACTIONS (1)
  - Rash maculo-papular [Unknown]
